FAERS Safety Report 5644416-4 (Version None)
Quarter: 2008Q1

REPORT INFORMATION
  Report Type: 
  Country: None (occurrence: None)
  Receive Date: 20080229
  Receipt Date: 20080219
  Transmission Date: 20080703
  Serious: Yes (Hospitalization)
  Sender: FDA-Public Use
  Company Number: US-ELI_LILLY_AND_COMPANY-US200802005117

PATIENT
  Sex: Female
  Weight: 87.075 kg

DRUGS (5)
  1. BYETTA [Suspect]
     Dosage: 5 UG, 2/D
     Route: 058
     Dates: start: 20070507, end: 20070101
  2. BYETTA [Suspect]
     Dosage: 10 UG, 2/D
     Route: 058
     Dates: start: 20070101
  3. AVANDAMET [Concomitant]
     Indication: DIABETES MELLITUS
     Dosage: UNK, 2/D
  4. GLIPIZIDE [Concomitant]
     Indication: DIABETES MELLITUS
     Dosage: 10 MG, EACH EVENING
  5. CHOLESTEROL- AND TRIGLYCERIDE REDUCERS [Concomitant]
     Indication: BLOOD CHOLESTEROL
     Dosage: UNK, UNKNOWN

REACTIONS (4)
  - DRY THROAT [None]
  - HEADACHE [None]
  - PHARYNGEAL OPERATION [None]
  - WEIGHT INCREASED [None]
